FAERS Safety Report 5907734-8 (Version None)
Quarter: 2008Q3

REPORT INFORMATION
  Report Type: 
  Country: None (occurrence: None)
  Receive Date: 20080929
  Receipt Date: 20080917
  Transmission Date: 20090109
  Serious: Yes (Other)
  Sender: FDA-Public Use
  Company Number: 100#03#2008-04681

PATIENT
  Age: 41 Year
  Sex: Female

DRUGS (2)
  1. CITALOPRAM HYDROBROMIDE [Suspect]
     Indication: DEPRESSION
     Dosage: 10 MG
     Route: 048
     Dates: start: 20080806, end: 20080821
  2. LOESTRIN 1.5/30 [Suspect]
     Indication: CONTRACEPTION
     Dosage: 1 DF ONCE DAILY
     Route: 048
     Dates: start: 20060101

REACTIONS (1)
  - METRORRHAGIA [None]
